FAERS Safety Report 9946868 (Version 1)
Quarter: 2014Q1

REPORT INFORMATION
  Report Type: Report from Study
  Country: US (occurrence: US)
  Receive Date: 20140303
  Receipt Date: 20140303
  Transmission Date: 20141002
  Serious: No
  Sender: FDA-Public Use
  Company Number: US-ABBVIE-13P-163-1063601-00

PATIENT
  Age: 54 Year
  Sex: Female

DRUGS (2)
  1. HUMIRA [Suspect]
     Indication: PSORIASIS
     Dates: start: 201302
  2. HCTZ [Concomitant]
     Indication: HYPERTENSION

REACTIONS (3)
  - Anxiety [Unknown]
  - Incorrect dose administered [Unknown]
  - Injection site haemorrhage [Unknown]
